FAERS Safety Report 12479786 (Version 1)
Quarter: 2016Q2

REPORT INFORMATION
  Report Type: Spontaneous
  Country: US (occurrence: US)
  Receive Date: 20160620
  Receipt Date: 20160620
  Transmission Date: 20160815
  Serious: No
  Sender: FDA-Public Use
  Company Number: US-PFIZER INC-2016304154

PATIENT
  Sex: Female

DRUGS (3)
  1. NEOSPORIN [Suspect]
     Active Substance: BACITRACIN ZINC\NEOMYCIN SULFATE\POLYMYXIN B SULFATE
     Route: 047
  2. SULPHUR [Suspect]
     Active Substance: SULFUR
  3. CODEINE [Suspect]
     Active Substance: CODEINE

REACTIONS (1)
  - Drug hypersensitivity [Unknown]
